FAERS Safety Report 4331389-X (Version None)
Quarter: 2004Q1

REPORT INFORMATION
  Report Type: 
  Country: None (occurrence: None)
  Receive Date: 20040331
  Receipt Date: 20040318
  Transmission Date: 20041129
  Serious: Yes (Hospitalization)
  Sender: FDA-Public Use
  Company Number: 2004018561

PATIENT
  Age: 22 Year
  Sex: Male

DRUGS (8)
  1. ZITHROMAX [Suspect]
     Indication: ILL-DEFINED DISORDER
     Dosage: 750 MG (WEEKLY), ORAL
     Route: 048
     Dates: end: 20040210
  2. ITRACONAZOLE [Suspect]
     Indication: ILL-DEFINED DISORDER
     Dosage: 300 MG (DAILY), ORAL
     Route: 048
     Dates: end: 20040210
  3. PANCREATIN TRIPLE STRENGTH CAP [Concomitant]
  4. URSODEOXYCHOLIC ACID (URSODEOXYCHOLIC ACID) [Concomitant]
  5. TOCOPHEROL CONCENTRATE CAP [Concomitant]
  6. MULTIVITAMIN [Concomitant]
  7. TEICOPLANIN (TEICOPLANIN) [Concomitant]
  8. FERROUS SULFATE TAB [Concomitant]

REACTIONS (3)
  - PERICARDIAL EFFUSION [None]
  - PERICARDITIS [None]
  - RESPIRATORY FAILURE [None]
